FAERS Safety Report 4887788-0 (Version None)
Quarter: 2006Q1

REPORT INFORMATION
  Report Type: 
  Country: None (occurrence: None)
  Receive Date: 20060123
  Receipt Date: 20060109
  Transmission Date: 20060701
  Serious: Yes (Hospitalization)
  Sender: FDA-Public Use
  Company Number: US-ROCHE-431399

PATIENT
  Age: 40 Year
  Sex: Female
  Weight: 164.1 kg

DRUGS (1)
  1. XENICAL [Suspect]
     Indication: OBESITY
     Route: 048

REACTIONS (5)
  - HYPERGLYCAEMIA [None]
  - NAUSEA [None]
  - POLYDIPSIA [None]
  - POLYURIA [None]
  - VOMITING [None]
